FAERS Safety Report 17018318 (Version 5)
Quarter: 2020Q2

REPORT INFORMATION
  Report Type: Report from Study
  Country: US (occurrence: US)
  Receive Date: 20191111
  Receipt Date: 20200602
  Transmission Date: 20200713
  Serious: Yes (Other)
  Sender: FDA-Public Use
  Company Number: NVSC2019US031261

PATIENT
  Sex: Female

DRUGS (3)
  1. PIQRAY [Suspect]
     Active Substance: ALPELISIB
     Dosage: 300 UNK
     Route: 048
     Dates: start: 20191021
  2. PIQRAY [Suspect]
     Active Substance: ALPELISIB
     Indication: BREAST CANCER
     Dosage: 300 MG, QD
     Route: 048
     Dates: start: 20191021
  3. PIQRAY [Suspect]
     Active Substance: ALPELISIB
     Dosage: 300 MG, BID
     Route: 048

REACTIONS (5)
  - Dry skin [Unknown]
  - Fatigue [Recovering/Resolving]
  - Intestinal obstruction [Unknown]
  - Rash [Unknown]
  - Diarrhoea [Unknown]
